FAERS Safety Report 4487874-3 (Version None)
Quarter: 2004Q4

REPORT INFORMATION
  Report Type: 
  Country: None (occurrence: None)
  Receive Date: 20041025
  Receipt Date: 20041012
  Transmission Date: 20050328
  Serious: Yes (Death)
  Sender: FDA-Public Use
  Company Number: 209628

PATIENT
  Age: 50 Year
  Sex: Male

DRUGS (1)
  1. AVASTIN [Suspect]
     Indication: CARCINOMA
     Dosage: INTRAVENOUS
     Route: 042

REACTIONS (1)
  - DEATH [None]
